FAERS Safety Report 16812845 (Version 1)
Quarter: 2019Q3

REPORT INFORMATION
  Report Type: Spontaneous
  Country: PL (occurrence: PL)
  Receive Date: 20190916
  Receipt Date: 20190916
  Transmission Date: 20191005
  Serious: Yes (Other)
  Sender: FDA-Public Use
  Company Number: PL-JAZZ-2019-PL-004696

PATIENT
  Age: 17 Year
  Sex: Male

DRUGS (1)
  1. ASPARAGINASE [Suspect]
     Active Substance: ASPARAGINASE
     Indication: T-CELL TYPE ACUTE LEUKAEMIA
     Dosage: UNKNOWN DOSE

REACTIONS (1)
  - Pancreatitis acute [Unknown]
